FAERS Safety Report 21115863 (Version 2)
Quarter: 2024Q1

REPORT INFORMATION
  Report Type: Report from Study
  Country: US (occurrence: US)
  Receive Date: 20220721
  Receipt Date: 20240321
  Transmission Date: 20240409
  Serious: No
  Sender: FDA-Public Use
  Company Number: US-SA-SAC20220720000119

PATIENT
  Age: 31 Year
  Sex: Female

DRUGS (2)
  1. DUPILUMAB [Suspect]
     Active Substance: DUPILUMAB
     Indication: Eczema
     Dosage: 600 MG, 1X
     Route: 058
  2. DUPILUMAB [Suspect]
     Active Substance: DUPILUMAB
     Dosage: 300 MG, QOW
     Route: 058
     Dates: start: 20220422, end: 20220701

REACTIONS (3)
  - Constipation [Unknown]
  - Nasopharyngitis [Unknown]
  - Dry eye [Unknown]

NARRATIVE: CASE EVENT DATE: 20220701
